FAERS Safety Report 5267885-0 (Version None)
Quarter: 2007Q1

REPORT INFORMATION
  Report Type: 
  Country: None (occurrence: None)
  Receive Date: 20061213
  Receipt Date: 20050207
  Transmission Date: 20070707
  Serious: Yes (Life-Threatening, Hospitalization)
  Sender: FDA-Public Use
  Company Number: 2004UW23316

PATIENT
  Age: 76 Year
  Sex: Male
  Weight: 66.224 kg

DRUGS (5)
  1. IRESSA [Suspect]
     Indication: NON-SMALL CELL LUNG CANCER
     Dosage: 250 MG DAILY PO
     Route: 048
     Dates: start: 20040613, end: 20040710
  2. CORDARONE [Concomitant]
  3. NORVASC [Concomitant]
  4. DIOVAN [Concomitant]
  5. ZOLOFT [Concomitant]

REACTIONS (1)
  - INTERSTITIAL LUNG DISEASE [None]
